FAERS Safety Report 23981804 (Version 1)
Quarter: 2024Q2

REPORT INFORMATION
  Report Type: Spontaneous
  Country: IE (occurrence: IE)
  Receive Date: 20240617
  Receipt Date: 20240617
  Transmission Date: 20240715
  Serious: Yes (Life-Threatening, Other)
  Sender: FDA-Public Use
  Company Number: None

PATIENT
  Age: 54 Year
  Sex: Female
  Weight: 112.59 kg

DRUGS (2)
  1. OLOPATADINE [Suspect]
     Active Substance: OLOPATADINE
     Indication: Product used for unknown indication
     Dosage: 1 DRP, Q12H (INSTIL ONE DROP INTO BOTH EYES TWICE DAILY)
     Route: 047
     Dates: start: 20240528, end: 20240528
  2. OLOPATADINE [Suspect]
     Active Substance: OLOPATADINE
     Dosage: UNK
     Route: 065

REACTIONS (13)
  - Tremor [Unknown]
  - Mobility decreased [Unknown]
  - Balance disorder [Unknown]
  - Dizziness [Unknown]
  - Dysphagia [Unknown]
  - Nausea [Unknown]
  - Diarrhoea [Unknown]
  - Dyspnoea [Unknown]
  - Vertigo [Unknown]
  - Blood pressure fluctuation [Not Recovered/Not Resolved]
  - Blood pressure decreased [Unknown]
  - Malaise [Unknown]
  - Speech disorder [Unknown]

NARRATIVE: CASE EVENT DATE: 20240528
